FAERS Safety Report 11516924 (Version 1)
Quarter: 2015Q3

REPORT INFORMATION
  Report Type: Spontaneous
  Country: US (occurrence: US)
  Receive Date: 20150917
  Receipt Date: 20150917
  Transmission Date: 20151125
  Serious: No
  Sender: FDA-Public Use
  Company Number: US-MYLANLABS-2015M1003553

PATIENT
  Sex: Male

DRUGS (1)
  1. BUTORPHANOL [Suspect]
     Active Substance: BUTORPHANOL

REACTIONS (2)
  - Blood glucose increased [Recovered/Resolved]
  - Feeling abnormal [Recovered/Resolved]
